FAERS Safety Report 10688795 (Version 1)
Quarter: 2015Q1

REPORT INFORMATION
  Report Type: Spontaneous
  Country: FR (occurrence: FR)
  Receive Date: 20150103
  Receipt Date: 20150103
  Transmission Date: 20150720
  Serious: Yes (Hospitalization)
  Sender: FDA-Public Use
  Company Number: FR-AUROBINDO-AUR-APL-2014-13541

PATIENT
  Age: 66 Year
  Sex: Male
  Weight: 87 kg

DRUGS (14)
  1. CLARITHROMYCIN ARROW 250MG [Suspect]
     Active Substance: CLARITHROMYCIN
     Indication: RASH
  2. CERIS [Concomitant]
     Active Substance: TROSPIUM CHLORIDE
     Indication: URINARY INCONTINENCE
     Dosage: 2 DF, EVERY MORNING
     Route: 048
  3. CLARITHROMYCIN ARROW 250MG [Suspect]
     Active Substance: CLARITHROMYCIN
     Indication: LUNG DISORDER
     Dosage: 500 MG, DAILY
     Route: 048
     Dates: start: 20140315, end: 20140320
  4. ROVAMYCINE                         /00074401/ [Suspect]
     Active Substance: SPIRAMYCIN
     Indication: LUNG DISORDER
     Dosage: 4.5 MUI, DAILY
     Route: 042
     Dates: start: 20140410, end: 20140421
  5. CLARITHROMYCIN ARROW 250MG [Suspect]
     Active Substance: CLARITHROMYCIN
     Indication: DYSPNOEA
  6. ROVAMYCINE                         /00074401/ [Suspect]
     Active Substance: SPIRAMYCIN
     Indication: HYPERTHERMIA
  7. AMOXICILLINE/ACIDE CLAVULANIQUE PANPHARMA [Suspect]
     Active Substance: AMOXICILLIN\CLAVULANIC ACID
     Indication: LUNG DISORDER
     Dosage: 3 G, DAILY
     Route: 042
     Dates: start: 20140410, end: 20140419
  8. AMOXICILLINE/ACIDE CLAVULANIQUE PANPHARMA [Suspect]
     Active Substance: AMOXICILLIN\CLAVULANIC ACID
     Indication: HYPERTHERMIA
  9. PERMIXON [Concomitant]
     Active Substance: SAW PALMETTO
     Indication: BENIGN PROSTATIC HYPERPLASIA
     Dosage: 1 DF, TWO TIMES A DAY (MORNING AND EVENING)
     Route: 048
  10. DOXYCYCLINE ARROW FILM-COATED TABLET 100MG [Suspect]
     Active Substance: DOXYCYCLINE HYCLATE
     Indication: RASH
     Dosage: 200 MG, DAILY
     Route: 048
     Dates: start: 20140131, end: 201402
  11. CIFLOX                             /00697201/ [Suspect]
     Active Substance: CIPROFLOXACIN
     Indication: NOSOCOMIAL INFECTION
     Dosage: 1000 MG, DAILY
     Route: 048
     Dates: end: 20140430
  12. COOLMETEC [Concomitant]
     Active Substance: HYDROCHLOROTHIAZIDE\OLMESARTAN MEDOXOMIL
     Indication: PRODUCT USED FOR UNKNOWN INDICATION
     Dosage: 1 DF, EVERY MORNING MORE THAN A YEAR
     Route: 048
  13. CIPROFLOXACIN ARROW 500MG [Suspect]
     Active Substance: CIPROFLOXACIN HYDROCHLORIDE
     Indication: LUNG DISORDER
     Dosage: 1000 MG, DAILY
     Route: 048
     Dates: start: 20140123, end: 20140214
  14. DILTIAZEM TEVA [Concomitant]
     Indication: HYPERTENSION
     Dosage: 1 DF, EVERY MORNING
     Route: 048

REACTIONS (17)
  - Stasis dermatitis [Recovered/Resolved]
  - Pruritus [Recovered/Resolved]
  - Skin lesion [Recovered/Resolved]
  - Liver disorder [Recovered/Resolved]
  - Rash maculo-papular [Recovered/Resolved]
  - Ulcer [Recovered/Resolved]
  - Erythema multiforme [Recovered/Resolved]
  - Dyspnoea [Unknown]
  - Hyperthermia [Recovered/Resolved]
  - Drug reaction with eosinophilia and systemic symptoms [Recovered/Resolved]
  - Eosinophilia [Recovered/Resolved]
  - Oral disorder [Recovered/Resolved]
  - Oral pain [Recovered/Resolved]
  - Nosocomial infection [Unknown]
  - Rash [Recovered/Resolved]
  - Inflammation [Recovered/Resolved]
  - Condition aggravated [Recovered/Resolved]

NARRATIVE: CASE EVENT DATE: 20140130
